FAERS Safety Report 8065643-5 (Version None)
Quarter: 2012Q1

REPORT INFORMATION
  Report Type: 
  Country: None (occurrence: None)
  Receive Date: 20120124
  Receipt Date: 20120116
  Transmission Date: 20120608
  Serious: Yes (Hospitalization, Other)
  Sender: FDA-Public Use
  Company Number: US-BAYER-2012-005947

PATIENT
  Age: 38 Year
  Sex: Female
  Weight: 62.585 kg

DRUGS (9)
  1. YAZ [Suspect]
     Indication: CONTRACEPTION
     Dosage: UNK
     Dates: start: 20090401, end: 20091001
  2. ALLEGRA-D [FEXOFENADINE HYDROCHLORIDE,PSEUDOEPHEDRINE] [Concomitant]
     Dosage: UNK
     Dates: start: 20090520
  3. ZEGERID [Concomitant]
     Dosage: UNK UNK, PRN
  4. YAZ [Suspect]
     Indication: PREMENSTRUAL SYNDROME
  5. GAVISCON [Concomitant]
  6. NSAID'S [Concomitant]
     Dosage: UNK UNK, PRN
  7. AMOXICILLIN AND CLAVULANATE POTASSIUM [Concomitant]
     Dosage: 875-125MG
     Dates: start: 20090528
  8. YAZ [Suspect]
  9. PROZAC [Concomitant]
     Dosage: 20 MG, QD
     Dates: start: 20090721

REACTIONS (6)
  - DYSPNOEA [None]
  - GALLBLADDER DISORDER [None]
  - CHOLECYSTITIS CHRONIC [None]
  - PULMONARY EMBOLISM [None]
  - ABDOMINAL PAIN [None]
  - BILIARY DYSKINESIA [None]
